FAERS Safety Report 25904207 (Version 1)
Quarter: 2025Q4

REPORT INFORMATION
  Report Type: Spontaneous
  Country: US (occurrence: US)
  Receive Date: 20251010
  Receipt Date: 20251010
  Transmission Date: 20260117
  Serious: Yes (Other)
  Sender: SANDOZ
  Company Number: US-002147023-NVSC2025US151044

PATIENT
  Age: 56 Year
  Sex: Female

DRUGS (3)
  1. FULVESTRANT [Suspect]
     Active Substance: FULVESTRANT
     Indication: Product used for unknown indication
     Dosage: 300 MG (150 MG, BID)
     Route: 065
     Dates: start: 202206
  2. RIBOCICLIB [Suspect]
     Active Substance: RIBOCICLIB
     Dosage: 200 MG
     Route: 065
     Dates: start: 202210
  3. RIBOCICLIB [Suspect]
     Active Substance: RIBOCICLIB
     Indication: Hormone receptor positive HER2 negative breast cancer
     Dosage: 600 MG, ( 21/7 SCHEDULE)
     Route: 065
     Dates: start: 202506

REACTIONS (9)
  - Oral disorder [Unknown]
  - Hormone receptor positive HER2 negative breast cancer [Unknown]
  - Malignant neoplasm progression [Unknown]
  - Neutropenia [Unknown]
  - Hepatic enzyme abnormal [Unknown]
  - Nausea [Unknown]
  - Fatigue [Unknown]
  - Diarrhoea [Unknown]
  - Alanine aminotransferase increased [Unknown]
